FAERS Safety Report 18338648 (Version 1)
Quarter: 2020Q3

REPORT INFORMATION
  Report Type: Spontaneous
  Country: US (occurrence: US)
  Receive Date: 20200928
  Receipt Date: 20200928
  Transmission Date: 20201103
  Serious: Yes (Other)
  Sender: FDA-Public Use
  Company Number: None

PATIENT
  Age: 5 Decade
  Sex: Male

DRUGS (3)
  1. AZITHROMYCIN ANHYDROUS. [Suspect]
     Active Substance: AZITHROMYCIN ANHYDROUS
     Dosage: ?          OTHER DOSE:500MGONCETHEN250QD;?
     Dates: start: 2020
  2. HYDROXYCHLOROQUINE [Suspect]
     Active Substance: HYDROXYCHLOROQUINE
     Indication: COVID-19
     Dosage: ?          OTHER DOSE:400MGFORONEDAY4DAY;?
     Route: 048
     Dates: start: 2020
  3. ACYCLOVIR. [Suspect]
     Active Substance: ACYCLOVIR

REACTIONS (3)
  - Intentional product use issue [None]
  - Acute kidney injury [None]
  - Electrocardiogram QT prolonged [None]
